FAERS Safety Report 9950775 (Version 2)
Quarter: 2014Q1

REPORT INFORMATION
  Report Type: Report from Study
  Country: US (occurrence: US)
  Receive Date: 20140304
  Receipt Date: 20140304
  Transmission Date: 20141002
  Serious: No
  Sender: FDA-Public Use
  Company Number: US-ABBVIE-13P-163-1062658-00

PATIENT
  Age: 48 Year
  Sex: Male

DRUGS (9)
  1. HUMIRA [Suspect]
     Indication: COLITIS ULCERATIVE
     Route: 058
     Dates: start: 20121116, end: 20130223
  2. HUMIRA [Suspect]
     Route: 058
     Dates: start: 20130223, end: 20130223
  3. ASACOL [Concomitant]
     Indication: COLITIS ULCERATIVE
  4. LOPRESSOR [Concomitant]
     Indication: HYPERTENSION
     Route: 048
  5. ALTACE [Concomitant]
     Indication: HYPERTENSION
  6. LESCOL [Concomitant]
     Indication: BLOOD CHOLESTEROL INCREASED
  7. PLAVIX [Concomitant]
     Indication: CARDIOVASCULAR EVENT PROPHYLAXIS
  8. ASA [Concomitant]
     Indication: CARDIOVASCULAR DISORDER
  9. PREDNISONE [Concomitant]
     Indication: INFLAMMATION
     Dosage: TAPERING DOSE

REACTIONS (1)
  - Drug ineffective [Unknown]
